FAERS Safety Report 6180149-6 (Version None)
Quarter: 2009Q2

REPORT INFORMATION
  Report Type: 
  Country: None (occurrence: None)
  Receive Date: 20090505
  Receipt Date: 20090430
  Transmission Date: 20091009
  Serious: Yes (Other)
  Sender: FDA-Public Use
  Company Number: US-BAYER-200911332BCC

PATIENT
  Age: 86 Year
  Sex: Male

DRUGS (8)
  1. ASPIRIN [Suspect]
     Indication: DRUG USE FOR UNKNOWN INDICATION
  2. ASPIRIN [Suspect]
     Indication: STENT PLACEMENT
     Route: 048
  3. PLAVIX [Suspect]
     Indication: STENT PLACEMENT
     Dosage: UNIT DOSE: 75 MG
     Route: 048
  4. PLAVIX [Suspect]
     Dosage: TOTAL DAILY DOSE: 75 MG  UNIT DOSE: 75 MG
     Route: 048
     Dates: start: 20061101
  5. LIPITOR [Concomitant]
  6. METOPROLOL TARTRATE [Concomitant]
  7. ENALAPRIL MALEATE [Concomitant]
  8. GABAPENTIN [Concomitant]

REACTIONS (12)
  - BLEEDING TIME PROLONGED [None]
  - CONFUSIONAL STATE [None]
  - DEPRESSION [None]
  - DISORIENTATION [None]
  - ECCHYMOSIS [None]
  - FEELING COLD [None]
  - HAEMORRHAGE [None]
  - INSOMNIA [None]
  - LOSS OF CONSCIOUSNESS [None]
  - NEURALGIA [None]
  - SKIN HAEMORRHAGE [None]
  - TREMOR [None]
